FAERS Safety Report 8011580-1 (Version None)
Quarter: 2011Q4

REPORT INFORMATION
  Report Type: 
  Country: None (occurrence: None)
  Receive Date: 20111228
  Receipt Date: 20111220
  Transmission Date: 20120403
  Serious: Yes (Hospitalization, Other)
  Sender: FDA-Public Use
  Company Number: CN-BRISTOL-MYERS SQUIBB COMPANY-16283483

PATIENT
  Age: 61 Year
  Sex: Female

DRUGS (5)
  1. BARACLUDE [Suspect]
     Route: 048
  2. CEFEPIME [Concomitant]
     Dosage: INJECTION
  3. INSULIN [Concomitant]
     Dosage: INSULIN INJECTION
  4. PANTOPRAZOLE [Concomitant]
  5. ALBUMIN (HUMAN) [Concomitant]
     Dosage: INJECTION

REACTIONS (5)
  - ASCITES [None]
  - TYPE 2 DIABETES MELLITUS [None]
  - RENAL IMPAIRMENT [None]
  - EPIGASTRIC DISCOMFORT [None]
  - VOMITING [None]
